FAERS Safety Report 11176981 (Version 1)
Quarter: 2015Q2

REPORT INFORMATION
  Report Type: Spontaneous
  Country: US (occurrence: None)
  Receive Date: 20150609
  Receipt Date: 20150609
  Transmission Date: 20150821
  Serious: Yes (Life-Threatening, Hospitalization)
  Sender: FDA-Public Use
  Company Number: None

PATIENT
  Age: 81 Year
  Sex: Male
  Weight: 106.6 kg

DRUGS (1)
  1. INFLIXIMAB [Suspect]
     Active Substance: INFLIXIMAB
     Indication: PSORIASIS
     Dates: end: 20150410

REACTIONS (4)
  - Mucosal haemorrhage [None]
  - Thrombocytopenia [None]
  - Epistaxis [None]
  - Ecchymosis [None]

NARRATIVE: CASE EVENT DATE: 20150511
